FAERS Safety Report 19218369 (Version 2)
Quarter: 2021Q2

REPORT INFORMATION
  Report Type: Spontaneous
  Country: TR (occurrence: TR)
  Receive Date: 20210505
  Receipt Date: 20210604
  Transmission Date: 20210717
  Serious: Yes (Death, Hospitalization)
  Sender: FDA-Public Use
  Company Number: TR-CELGENEUS-TUR-20210405329

PATIENT
  Age: 64 Year
  Sex: Female

DRUGS (2)
  1. REVLIMID [Suspect]
     Active Substance: LENALIDOMIDE
     Indication: PLASMA CELL MYELOMA
     Dosage: 10 MILLIGRAM
     Route: 048
     Dates: start: 20210406, end: 20210420
  2. HIBOR [Concomitant]
     Indication: ANTICOAGULANT THERAPY
     Route: 065

REACTIONS (6)
  - Decreased appetite [Unknown]
  - Hypertension [Unknown]
  - Autoimmune hepatitis [Fatal]
  - Chronic kidney disease [Unknown]
  - Fatigue [Unknown]
  - Nausea [Unknown]
